APPROVED DRUG PRODUCT: FAMOTIDINE
Active Ingredient: FAMOTIDINE
Strength: 10MG
Dosage Form/Route: TABLET;ORAL
Application: A077367 | Product #002
Applicant: DR REDDYS LABORATORIES LTD
Approved: Aug 17, 2001 | RLD: No | RS: No | Type: OTC